FAERS Safety Report 5899570-6 (Version None)
Quarter: 2008Q3

REPORT INFORMATION
  Report Type: 
  Country: None (occurrence: None)
  Receive Date: 20080926
  Receipt Date: 20080918
  Transmission Date: 20090109
  Serious: Yes (Other)
  Sender: FDA-Public Use
  Company Number: PHBS2008FR05131

PATIENT
  Age: 72 Year
  Sex: Male

DRUGS (1)
  1. PAMIDRONATE DISODIUM [Suspect]
     Indication: OSTEOARTHRITIS
     Dosage: 60 MG, UNK

REACTIONS (13)
  - ARTHRALGIA [None]
  - ARTHRITIS [None]
  - ASPIRATION JOINT [None]
  - BLOOD CALCIUM DECREASED [None]
  - C-REACTIVE PROTEIN INCREASED [None]
  - CHONDROCALCINOSIS PYROPHOSPHATE [None]
  - INFLUENZA LIKE ILLNESS [None]
  - MYALGIA [None]
  - NECK PAIN [None]
  - OSTEOARTHRITIS [None]
  - PYREXIA [None]
  - SYNOVITIS [None]
  - WHITE BLOOD CELL COUNT INCREASED [None]
